FAERS Safety Report 13906252 (Version 1)
Quarter: 2017Q3

REPORT INFORMATION
  Report Type: Spontaneous
  Country: DE (occurrence: DE)
  Receive Date: 20170825
  Receipt Date: 20170825
  Transmission Date: 20171127
  Serious: Yes (Other)
  Sender: FDA-Public Use
  Company Number: DE-BAYER-2017-157233

PATIENT
  Sex: Female

DRUGS (3)
  1. CIPROBAY 400/200 MG/ML [Suspect]
     Active Substance: CIPROFLOXACIN HYDROCHLORIDE
     Dosage: 400 MG, QD
     Route: 064
  2. NIFEDIPINE (SL) [Suspect]
     Active Substance: NIFEDIPINE
     Dosage: UNK
  3. CIPROBAY 500 MG [Suspect]
     Active Substance: CIPROFLOXACIN
     Dosage: 500 MG, UNK
     Route: 064

REACTIONS (3)
  - Foetal exposure during pregnancy [None]
  - Premature baby [None]
  - Low birth weight baby [None]
